FAERS Safety Report 8364773-8 (Version None)
Quarter: 2012Q1

REPORT INFORMATION
  Report Type: 
  Country: None (occurrence: None)
  Receive Date: 20120323
  Receipt Date: 20111118
  Transmission Date: 20120608
  Serious: Yes (Other)
  Sender: FDA-Public Use
  Company Number: 163-21880-11112904

PATIENT
  Age: 84 Year
  Sex: Male

DRUGS (4)
  1. ALPHAGAN P [Concomitant]
  2. STATIN [Concomitant]
  3. ACE INHBITOR [Concomitant]
  4. REVLIMID [Suspect]
     Indication: MYELODYSPLASTIC SYNDROME
     Dosage: 5 MG, 1 IN 1 D, PO
     Route: 048
     Dates: start: 20081101

REACTIONS (1)
  - RETINAL VEIN THROMBOSIS [None]
